FAERS Safety Report 5118562-8 (Version None)
Quarter: 2006Q3

REPORT INFORMATION
  Report Type: 
  Country: None (occurrence: None)
  Receive Date: 20060927
  Receipt Date: 20060914
  Transmission Date: 20061208
  Serious: Yes (Hospitalization)
  Sender: FDA-Public Use
  Company Number: 229889

PATIENT

DRUGS (1)
  1. MABTHERA                   (RITUXIMAB) [Suspect]
     Indication: DRUG USE FOR UNKNOWN INDICATION
     Dosage: INFUSION

REACTIONS (2)
  - APLASIA [None]
  - BRONCHOPULMONARY ASPERGILLOSIS [None]
